FAERS Safety Report 24973079 (Version 1)
Quarter: 2025Q1

REPORT INFORMATION
  Report Type: Spontaneous
  Country: GB (occurrence: GB)
  Receive Date: 20250216
  Receipt Date: 20250216
  Transmission Date: 20250409
  Serious: Yes (Hospitalization, Other)
  Sender: DEXCEL
  Company Number: None

PATIENT
  Age: 72 Year
  Sex: Female

DRUGS (8)
  1. ClarithromycinCLARITHROMYCIN (Specific Substance SUB758) [Concomitant]
  2. BISOPROLOL [Concomitant]
     Active Substance: BISOPROLOL
  3. ParacetamolPARACETAMOL (Specific Substance SUB155) [Concomitant]
  4. AciclovirACICLOVIR [Concomitant]
  5. ColecalciferolCOLECALCIFEROL [Concomitant]
  6. ChlorhexidineCHLORHEXIDINE (Specific Substance SUB3404) [Concomitant]
  7. AmoxicillinAMOXICILLIN [Concomitant]
  8. OMEPRAZOLE [Suspect]
     Active Substance: OMEPRAZOLE

REACTIONS (2)
  - Diarrhoea [Unknown]
  - Hypomagnesaemia [Unknown]
